FAERS Safety Report 6464451-6 (Version None)
Quarter: 2009Q4

REPORT INFORMATION
  Report Type: 
  Country: None (occurrence: None)
  Receive Date: 20091124
  Receipt Date: 20091007
  Transmission Date: 20100525
  Serious: Yes (Hospitalization)
  Sender: FDA-Public Use
  Company Number: 2009AC000186

PATIENT
  Age: 66 Year
  Sex: Male

DRUGS (27)
  1. DIGOXIN [Suspect]
     Dosage: 0.25 MG; QD; PO
     Route: 048
     Dates: start: 20001201, end: 20080101
  2. TRIAMCINOLONE [Concomitant]
  3. HUMALOG [Concomitant]
  4. GUAIFENESIN [Concomitant]
  5. CARTIA XT [Concomitant]
  6. FLUOCINONIDE [Concomitant]
  7. TRICOR [Concomitant]
  8. FUROSEMIDE [Concomitant]
  9. LOVENOX [Concomitant]
  10. WARFARIN SODIUM [Concomitant]
  11. FLECAINIDE ACETATE [Concomitant]
  12. AVANDARYL [Concomitant]
  13. LANTUS [Concomitant]
  14. CRESTOR [Concomitant]
  15. TRICOR [Concomitant]
  16. UROXATRAL [Concomitant]
  17. TRAMADOL HCL [Concomitant]
  18. XANAX [Concomitant]
  19. AMBIEN [Concomitant]
  20. PRILOSEC [Concomitant]
  21. FUROSEMIDE [Concomitant]
  22. METOPROLOL [Concomitant]
  23. PROPAFENONE [Concomitant]
  24. WARFARIN SODIUM [Concomitant]
  25. DIOVAN [Concomitant]
  26. METFORMIN HCL [Concomitant]
  27. MULTI-VITAMINS [Concomitant]

REACTIONS (8)
  - ATRIAL FIBRILLATION [None]
  - BLOOD GLUCOSE INCREASED [None]
  - DEEP VEIN THROMBOSIS [None]
  - ECONOMIC PROBLEM [None]
  - FATIGUE [None]
  - MULTIPLE INJURIES [None]
  - SURGERY [None]
  - UNEVALUABLE EVENT [None]
